FAERS Safety Report 15106571 (Version 3)
Quarter: 2018Q4

REPORT INFORMATION
  Report Type: Spontaneous
  Country: US (occurrence: US)
  Receive Date: 20180704
  Receipt Date: 20181122
  Transmission Date: 20190204
  Serious: No
  Sender: FDA-Public Use
  Company Number: US-SA-2018SA146018

PATIENT
  Age: 48 Year
  Sex: Female
  Weight: 119 kg

DRUGS (1)
  1. TOUJEO [Suspect]
     Active Substance: INSULIN GLARGINE
     Indication: TYPE 2 DIABETES MELLITUS
     Dosage: 50 U, QD
     Route: 051
     Dates: start: 20170221

REACTIONS (3)
  - Device issue [Unknown]
  - Drug administered in wrong device [Unknown]
  - Fatigue [Unknown]

NARRATIVE: CASE EVENT DATE: 20170221
